FAERS Safety Report 19984889 (Version 2)
Quarter: 2022Q2

REPORT INFORMATION
  Report Type: Report from Study
  Country: US (occurrence: US)
  Receive Date: 20211021
  Receipt Date: 20220426
  Transmission Date: 20220721
  Serious: No
  Sender: FDA-Public Use
  Company Number: US-KYOWAKIRIN-2021BKK017496

PATIENT

DRUGS (1)
  1. CRYSVITA [Suspect]
     Active Substance: BUROSUMAB-TWZA
     Indication: Hereditary hypophosphataemic rickets
     Dosage: 20 MG, ONCE EVERY 14 DAYS
     Route: 058
     Dates: start: 20190201, end: 202110

REACTIONS (2)
  - Exposure to SARS-CoV-2 [Recovered/Resolved]
  - Quarantine [Recovered/Resolved]

NARRATIVE: CASE EVENT DATE: 20211012
